FAERS Safety Report 21865572 (Version 1)
Quarter: 2023Q1

REPORT INFORMATION
  Report Type: Report from Study
  Country: PR (occurrence: PR)
  Receive Date: 20230116
  Receipt Date: 20230116
  Transmission Date: 20230417
  Serious: No
  Sender: FDA-Public Use
  Company Number: PR-ABBVIE-4270520

PATIENT
  Sex: Female
  Weight: 43.998 kg

DRUGS (1)
  1. VENCLEXTA [Suspect]
     Active Substance: VENETOCLAX
     Indication: Acute myeloid leukaemia
     Route: 048
     Dates: start: 20200624

REACTIONS (5)
  - Nasal congestion [Unknown]
  - Cough [Unknown]
  - Epistaxis [Unknown]
  - Pain [Unknown]
  - Chest pain [Unknown]
